FAERS Safety Report 6994023-6 (Version None)
Quarter: 2010Q3

REPORT INFORMATION
  Report Type: 
  Country: None (occurrence: None)
  Receive Date: 20100917
  Receipt Date: 20100614
  Transmission Date: 20110219
  Serious: No
  Sender: FDA-Public Use
  Company Number: US-ASTRAZENECA-2010SE27632

PATIENT
  Age: 521 Month
  Sex: Female
  Weight: 108.9 kg

DRUGS (10)
  1. SEROQUEL [Suspect]
     Indication: INSOMNIA
     Route: 048
  2. WELLBUTRIN [Concomitant]
  3. TRILEPTAL [Concomitant]
  4. KLONOPIN [Concomitant]
  5. PROZAC [Concomitant]
  6. LYRICA [Concomitant]
     Dosage: PRN
  7. ROBAXIN [Concomitant]
  8. IBUPROPHEN [Concomitant]
  9. FISH OIL [Concomitant]
  10. OTC SUPPLEMENTS AND VITAMINS [Concomitant]

REACTIONS (3)
  - AGGRESSION [None]
  - DRUG DOSE OMISSION [None]
  - INSOMNIA [None]
